FAERS Safety Report 5573735-5 (Version None)
Quarter: 2007Q4

REPORT INFORMATION
  Report Type: 
  Country: None (occurrence: None)
  Receive Date: 20071226
  Receipt Date: 20071220
  Transmission Date: 20080405
  Serious: Yes (Hospitalization, Other)
  Sender: FDA-Public Use
  Company Number: AU-BRISTOL-MYERS SQUIBB COMPANY-14008890

PATIENT
  Age: 22 Year
  Sex: Male

DRUGS (4)
  1. ABATACEPT [Suspect]
     Indication: CROHN'S DISEASE
     Route: 042
     Dates: start: 20070809
  2. MERCAPTOPURINE [Concomitant]
     Dates: start: 20070301
  3. IBUPROFEN [Concomitant]
     Dates: start: 20070301, end: 20071207
  4. DEPTRAN [Concomitant]
     Dates: start: 20071129

REACTIONS (4)
  - ABSCESS [None]
  - CROHN'S DISEASE [None]
  - DEPRESSION [None]
  - INFECTION [None]
